FAERS Safety Report 17727459 (Version 1)
Quarter: 2020Q2

REPORT INFORMATION
  Report Type: Spontaneous
  Country: US (occurrence: US)
  Receive Date: 20200430
  Receipt Date: 20200430
  Transmission Date: 20200714
  Serious: Yes (Other)
  Sender: FDA-Public Use
  Company Number: NVSC2020US115186

PATIENT

DRUGS (1)
  1. AMOXICILLIN,CLAVULANIC ACID [Suspect]
     Active Substance: AMOXICILLIN\CLAVULANIC ACID
     Indication: OTITIS MEDIA ACUTE
     Dosage: 45/6.4 MG/KG/D IN 2 DIVIDED DOSES
     Route: 065

REACTIONS (1)
  - Seizure [Unknown]
